FAERS Safety Report 7024073-5 (Version None)
Quarter: 2010Q4

REPORT INFORMATION
  Report Type: 
  Country: None (occurrence: None)
  Receive Date: 20101001
  Receipt Date: 20100921
  Transmission Date: 20110411
  Serious: Yes (Hospitalization)
  Sender: FDA-Public Use
  Company Number: US-JNJFOC-20100907509

PATIENT
  Sex: Female
  Weight: 72.58 kg

DRUGS (10)
  1. DURAGESIC-100 [Suspect]
     Indication: PAIN
     Route: 062
  2. ZOLOFT [Concomitant]
     Indication: DEPRESSION
     Route: 065
  3. ZOLOFT [Concomitant]
     Indication: BIPOLAR I DISORDER
     Route: 065
  4. NEXIUM [Concomitant]
     Indication: GASTRIC DISORDER
     Route: 048
  5. ELAVIL [Concomitant]
     Indication: DEPRESSION
     Route: 048
  6. ELAVIL [Concomitant]
     Indication: ANXIETY
     Route: 048
  7. THEO-DUR [Concomitant]
     Indication: ASTHMA
     Route: 065
  8. IRON [Concomitant]
     Indication: ANAEMIA
     Route: 065
  9. POTASSIUM  CHLORIDE [Concomitant]
     Indication: HYPOKALAEMIA
     Route: 065
  10. CELEBREX [Concomitant]
     Route: 065

REACTIONS (14)
  - APHASIA [None]
  - APPLICATION SITE SCAR [None]
  - APPLICATION SITE VESICLES [None]
  - BURNING SENSATION [None]
  - COMA [None]
  - FEELING HOT [None]
  - FIBROMYALGIA [None]
  - HYPOKINESIA [None]
  - LYMPHOMA [None]
  - MUSCULAR WEAKNESS [None]
  - PAIN [None]
  - WEIGHT DECREASED [None]
  - WEIGHT INCREASED [None]
  - WITHDRAWAL SYNDROME [None]
